FAERS Safety Report 8383195-7 (Version None)
Quarter: 2012Q2

REPORT INFORMATION
  Report Type: 
  Country: None (occurrence: None)
  Receive Date: 20120524
  Receipt Date: 20120515
  Transmission Date: 20120825
  Serious: Yes (Other)
  Sender: FDA-Public Use
  Company Number: US-BRISTOL-MYERS SQUIBB COMPANY-16595118

PATIENT
  Age: 47 Year
  Sex: Male
  Weight: 86 kg

DRUGS (7)
  1. REYATAZ [Suspect]
     Indication: HIV INFECTION
  2. TRUVADA [Suspect]
     Indication: HIV INFECTION
  3. INTELENCE [Suspect]
     Indication: HIV INFECTION
  4. EPZICOM [Suspect]
     Indication: HIV INFECTION
  5. SELZENTRY [Suspect]
     Indication: HIV INFECTION
  6. TESTIM [Suspect]
     Indication: BLOOD TESTOSTERONE DECREASED
     Dosage: GEL
     Route: 062
     Dates: start: 20101201, end: 20120101
  7. TESTIM [Suspect]
     Indication: MYOPATHY
     Dosage: GEL
     Route: 062
     Dates: start: 20101201, end: 20120101

REACTIONS (1)
  - MITOCHONDRIAL MYOPATHY ACQUIRED [None]
